FAERS Safety Report 13775040 (Version 1)
Quarter: 2017Q3

REPORT INFORMATION
  Report Type: Other
  Country: FR (occurrence: FR)
  Receive Date: 20170720
  Receipt Date: 20170720
  Transmission Date: 20171127
  Serious: Yes (Other)
  Sender: FDA-Public Use
  Company Number: FR-CELLTRION INC.-2017FR009177

PATIENT

DRUGS (4)
  1. REMSIMA [Suspect]
     Active Substance: INFLIXIMAB
     Indication: ANKYLOSING SPONDYLITIS
     Dosage: 3 MG/KG ALL 8 WEEKS
     Route: 042
     Dates: start: 20170116, end: 20170116
  2. REMSIMA [Suspect]
     Active Substance: INFLIXIMAB
     Dosage: 3 MG/KG ALL 8 WEEKS
     Route: 042
     Dates: start: 20170313, end: 20170313
  3. REMSIMA [Suspect]
     Active Substance: INFLIXIMAB
     Dosage: 3 MG/KG ALL 8 WEEKS
     Route: 042
     Dates: start: 20170509, end: 20170509
  4. IMETH                              /00113801/ [Concomitant]
     Dosage: 10 MG/WEEK

REACTIONS (3)
  - Drug ineffective [Unknown]
  - Iridocyclitis [Not Recovered/Not Resolved]
  - Inflammatory pain [Not Recovered/Not Resolved]

NARRATIVE: CASE EVENT DATE: 201703
